FAERS Safety Report 5170343-5 (Version None)
Quarter: 2006Q4

REPORT INFORMATION
  Report Type: 
  Country: None (occurrence: None)
  Receive Date: 20061204
  Receipt Date: 20061128
  Transmission Date: 20070319
  Serious: Yes (Life-Threatening)
  Sender: FDA-Public Use
  Company Number: 430001M06ITA

PATIENT
  Age: 47 Year
  Sex: Male

DRUGS (3)
  1. NOVANTRONE [Suspect]
     Dosage: 5 MG, 1 IN 1 DAYS, INTRAVENOUS
     Route: 042
     Dates: start: 20061118, end: 20061118
  2. CYTARABINE [Suspect]
     Indication: B-CELL LYMPHOMA
     Dosage: 100 MG, 1 IN 1 DAYS, INTRAVENOUS
     Route: 042
     Dates: start: 20061118, end: 20061118
  3. DEXAMETHASONE [Suspect]
     Dosage: 4 MG, 1 IN 1 DAYS, INTRAVENOUS
     Route: 042
     Dates: start: 20061118, end: 20061118

REACTIONS (1)
  - LARGE INTESTINE PERFORATION [None]
